FAERS Safety Report 6732082-6 (Version None)
Quarter: 2010Q2

REPORT INFORMATION
  Report Type: 
  Country: None (occurrence: None)
  Receive Date: 20100519
  Receipt Date: 20100513
  Transmission Date: 20101027
  Serious: Yes (Other)
  Sender: FDA-Public Use
  Company Number: CA-SANOFI-AVENTIS-2010SA017340

PATIENT
  Age: 63 Year
  Sex: Male
  Weight: 100.7 kg

DRUGS (9)
  1. TAXOTERE [Suspect]
     Route: 041
     Dates: start: 20081129, end: 20081129
  2. TAXOTERE [Suspect]
     Route: 041
     Dates: start: 20090219, end: 20090219
  3. ELIGARD [Suspect]
     Route: 058
     Dates: start: 20080905, end: 20080905
  4. ELIGARD [Suspect]
     Dates: start: 20090217, end: 20090217
  5. THERAPEUTIC RADIOPHARMACEUTICALS [Suspect]
  6. ARTHROTEC [Concomitant]
     Indication: DRUG USE FOR UNKNOWN INDICATION
  7. VITAMIN D [Concomitant]
     Indication: DRUG USE FOR UNKNOWN INDICATION
  8. EFFEXOR [Concomitant]
     Indication: DRUG USE FOR UNKNOWN INDICATION
  9. TAMSULOSIN HYDROCHLORIDE [Concomitant]
     Indication: DRUG USE FOR UNKNOWN INDICATION

REACTIONS (1)
  - PATHOLOGICAL FRACTURE [None]
